FAERS Safety Report 25097052 (Version 1)
Quarter: 2025Q1

REPORT INFORMATION
  Report Type: Report from Study
  Country: US (occurrence: US)
  Receive Date: 20250319
  Receipt Date: 20250319
  Transmission Date: 20250409
  Serious: Yes (Hospitalization)
  Sender: BEIGENE
  Company Number: US-BEIGENE-BGN-2025-004384

PATIENT
  Age: 77 Year

DRUGS (1)
  1. BRUKINSA [Suspect]
     Active Substance: ZANUBRUTINIB
     Indication: Chronic lymphocytic leukaemia
     Dosage: 160 MILLIGRAM, BID

REACTIONS (2)
  - Feeling abnormal [Unknown]
  - White blood cell count decreased [Unknown]
